FAERS Safety Report 11417042 (Version 5)
Quarter: 2016Q1

REPORT INFORMATION
  Report Type: Report from Study
  Country: ES (occurrence: ES)
  Receive Date: 20150825
  Receipt Date: 20160120
  Transmission Date: 20160525
  Serious: Yes (Hospitalization)
  Sender: FDA-Public Use
  Company Number: ES-ABBVIE-15P-144-1449442-00

PATIENT
  Age: 66 Year
  Sex: Male

DRUGS (6)
  1. DUODOPA [Suspect]
     Active Substance: CARBIDOPA\LEVODOPA
     Indication: PARKINSON^S DISEASE
     Route: 050
     Dates: start: 201212
  2. DUODOPA [Suspect]
     Active Substance: CARBIDOPA\LEVODOPA
     Dosage: MD 3ML CD 11ML, CD 3.8ML/H, ED 5ML,PERFUSION TIME 16H
     Route: 050
     Dates: start: 201510
  3. DUODOPA [Suspect]
     Active Substance: CARBIDOPA\LEVODOPA
     Dosage: MD 3ML CD 11ML, CD 3.6ML/H, ED 5ML,PERFUSION TIME 16H
     Route: 050
     Dates: start: 201508, end: 201510
  4. DUODOPA [Suspect]
     Active Substance: CARBIDOPA\LEVODOPA
     Route: 050
  5. DUODOPA [Suspect]
     Active Substance: CARBIDOPA\LEVODOPA
     Dosage: MD 3ML, CD 11ML, CD 4.5ML/H, ED 5ML, PERFUSION TIME 16 HRS
     Route: 050
     Dates: end: 201508
  6. CARBIDOPA LEVODOPA [Concomitant]
     Active Substance: CARBIDOPA\LEVODOPA
     Indication: PRODUCT USED FOR UNKNOWN INDICATION

REACTIONS (10)
  - Cerebrovascular accident [Recovered/Resolved with Sequelae]
  - Device issue [Recovered/Resolved]
  - On and off phenomenon [Unknown]
  - Cerebrovascular accident [Recovering/Resolving]
  - Drug dose omission [Unknown]
  - Nervous system disorder [Unknown]
  - Drug administered at inappropriate site [Unknown]
  - Dyskinesia [Recovering/Resolving]
  - Mobility decreased [Unknown]
  - Cerebrovascular accident [Recovering/Resolving]

NARRATIVE: CASE EVENT DATE: 20150724
